FAERS Safety Report 5510130-9 (Version None)
Quarter: 2007Q4

REPORT INFORMATION
  Report Type: 
  Country: None (occurrence: None)
  Receive Date: 20071106
  Receipt Date: 20071019
  Transmission Date: 20080405
  Serious: Yes (Life-Threatening, Other)
  Sender: FDA-Public Use
  Company Number: 2007US002622

PATIENT
  Age: 79 Year
  Sex: Male

DRUGS (8)
  1. AMBISOME [Suspect]
     Indication: BRONCHOPULMONARY ASPERGILLOSIS
     Dosage: 100 MG, UID/QD, IV DRIP
     Route: 041
     Dates: start: 20070801, end: 20070806
  2. SOLDEM 3A (SODIUM LACTATE, POTASSIUM CHLORIDE, CARBOHYDRATES NOS, SODI [Concomitant]
  3. NOVO HEPARIN                             (HEPARIN CALCIUM) [Concomitant]
  4. OMEGACIN                  (BIAPENEM) [Concomitant]
  5. AMINO ACIDS           /CARBOHYDRATES/MINERALS/VITAMINS [Concomitant]
  6. OMEPRAL [Concomitant]
  7. PROPOFOL [Concomitant]
  8. SOL-MELCORT              (METHYLPREDNISOLONE SODIUM SUCCINATE) [Concomitant]

REACTIONS (8)
  - ANAEMIA [None]
  - C-REACTIVE PROTEIN INCREASED [None]
  - HYPOALBUMINAEMIA [None]
  - HYPOTENSION [None]
  - PLATELET COUNT DECREASED [None]
  - PULMONARY OEDEMA [None]
  - RESPIRATORY FAILURE [None]
  - WHITE BLOOD CELL COUNT DECREASED [None]
